FAERS Safety Report 8475926-2 (Version None)
Quarter: 2012Q2

REPORT INFORMATION
  Report Type: 
  Country: None (occurrence: None)
  Receive Date: 20120628
  Receipt Date: 20120618
  Transmission Date: 20120825
  Serious: Yes (Other)
  Sender: FDA-Public Use
  Company Number: KR-WATSON-2012-11232

PATIENT
  Age: 43 Year
  Sex: Male

DRUGS (3)
  1. LEVETIRACETAM [Suspect]
     Indication: EPILEPSY
     Dosage: UNK
     Route: 065
  2. VALPROATE SODIUM [Suspect]
     Indication: EPILEPSY
     Dosage: 2000 MG, DAILY
     Route: 065
  3. TOPIRAMATE [Suspect]
     Indication: EPILEPSY
     Dosage: UNK
     Route: 065

REACTIONS (1)
  - ENCEPHALOPATHY [None]
